FAERS Safety Report 15689977 (Version 1)
Quarter: 2018Q4

REPORT INFORMATION
  Report Type: Spontaneous
  Country: US (occurrence: US)
  Receive Date: 20181205
  Receipt Date: 20181205
  Transmission Date: 20190205
  Serious: Yes (Other)
  Sender: FDA-Public Use
  Company Number: US-PFIZER INC-2018496359

PATIENT
  Age: 58 Year
  Sex: Male
  Weight: 97.52 kg

DRUGS (6)
  1. LYRICA [Suspect]
     Active Substance: PREGABALIN
     Indication: NEUROPATHY PERIPHERAL
     Dosage: 600 MG, DAILY [1 CAPSULES BY MOUTH IN THE MORNING, AND THREE CAPSULES BY MOUTH IN THE EVENING]
     Route: 048
     Dates: start: 20180910
  2. LYRICA [Suspect]
     Active Substance: PREGABALIN
     Dosage: 2 DF, 1X/DAY [ 2 CAPSULES IN THE EVENING]
     Dates: start: 20181003
  3. LYRICA [Suspect]
     Active Substance: PREGABALIN
     Dosage: 4 DF, DAILY [3 CAPSULES AT NIGHT AND ONE IN THE MORNING]
     Dates: start: 20181016
  4. LYRICA [Suspect]
     Active Substance: PREGABALIN
     Dosage: 1 DF, 2X/DAY [ONE CAPSULE IN THE MORNING AND EVENING]
  5. BAYER ASPIRIN [Concomitant]
     Active Substance: ASPIRIN
     Dosage: UNK
  6. NORTRIPTYLINE HCL [Concomitant]
     Active Substance: NORTRIPTYLINE HYDROCHLORIDE
     Indication: PAIN
     Dosage: 75 MG, 1X/DAY
     Route: 048
     Dates: start: 20171212

REACTIONS (7)
  - Urinary retention [Unknown]
  - Micturition urgency [Unknown]
  - Intentional product misuse [Unknown]
  - Pain [Not Recovered/Not Resolved]
  - Insomnia [Unknown]
  - Weight decreased [Not Recovered/Not Resolved]
  - Skin cancer [Unknown]

NARRATIVE: CASE EVENT DATE: 20180813
